FAERS Safety Report 8278385-8 (Version None)
Quarter: 2012Q2

REPORT INFORMATION
  Report Type: 
  Country: None (occurrence: None)
  Receive Date: 20120412
  Receipt Date: 20110822
  Transmission Date: 20120825
  Serious: No
  Sender: FDA-Public Use
  Company Number: US-ASTRAZENECA-2011SE48576

PATIENT
  Age: 51 Year
  Sex: Female

DRUGS (1)
  1. NEXIUM [Suspect]
     Route: 048

REACTIONS (6)
  - EMPHYSEMA [None]
  - MALAISE [None]
  - INJURY [None]
  - BOWEL MOVEMENT IRREGULARITY [None]
  - PNEUMONIA [None]
  - DRUG DOSE OMISSION [None]
